FAERS Safety Report 8164240-0 (Version None)
Quarter: 2012Q1

REPORT INFORMATION
  Report Type: 
  Country: None (occurrence: None)
  Receive Date: 20120224
  Receipt Date: 20120117
  Transmission Date: 20120608
  Serious: No
  Sender: FDA-Public Use
  Company Number: US-ASTRAZENECA-2012SE03577

PATIENT
  Age: 33 Year
  Sex: Female

DRUGS (1)
  1. VIMOVO [Suspect]
     Indication: BACK PAIN
     Dosage: 500MG/20MG BID
     Route: 048
     Dates: start: 20120101, end: 20120101

REACTIONS (2)
  - DRUG PRESCRIBING ERROR [None]
  - NAUSEA [None]
